FAERS Safety Report 9295218 (Version 1)
Quarter: 2013Q2

REPORT INFORMATION
  Report Type: Spontaneous
  Country: US (occurrence: None)
  Receive Date: 20130516
  Receipt Date: 20130516
  Transmission Date: 20140414
  Serious: Yes (Hospitalization)
  Sender: FDA-Public Use
  Company Number: None

PATIENT
  Age: 91 Year
  Sex: Female
  Weight: 54 kg

DRUGS (17)
  1. SOLIFENACIN [Suspect]
     Indication: URINARY INCONTINENCE
     Route: 048
     Dates: start: 20121205, end: 20121205
  2. RAMIPRIL [Suspect]
     Indication: HYPERTENSION
     Route: 048
  3. ASPIRIN [Concomitant]
  4. CHOLECALCIFEROL [Concomitant]
  5. DOCUSATE SODIUM [Concomitant]
  6. HYDROCODONE/ACETAMINOPHEN [Concomitant]
  7. LORAZEPAM-PRN [Concomitant]
  8. MAGNESIUM OXIDE 400 [Concomitant]
  9. PRAVASTATIN [Concomitant]
  10. TRAMADOL [Concomitant]
  11. ERGPCALCIFEROL [Concomitant]
  12. NEBIVOLOL [Concomitant]
  13. AMLODIPINE [Concomitant]
  14. NITROGLYCERIN [Concomitant]
  15. TEMAZEPAM [Concomitant]
  16. OMEPRAZOLE [Concomitant]
  17. LIDOCAINE PATCH [Concomitant]

REACTIONS (3)
  - Angioedema [None]
  - Dysphagia [None]
  - Dyspnoea [None]
